FAERS Safety Report 19306685 (Version 2)
Quarter: 2021Q2

REPORT INFORMATION
  Report Type: Spontaneous
  Country: US (occurrence: US)
  Receive Date: 20210526
  Receipt Date: 20210624
  Transmission Date: 20210717
  Serious: Yes (Hospitalization, Other)
  Sender: FDA-Public Use
  Company Number: US-ENDO PHARMACEUTICALS INC-2021-007553

PATIENT
  Age: 49 Year
  Sex: Female
  Weight: 58.96 kg

DRUGS (1)
  1. QWO [Suspect]
     Active Substance: COLLAGENASE CLOSTRIDIUM HISTOLYTICUM-AAES
     Indication: PEAU D^ORANGE
     Dosage: UNK 1.68 DOSE/7.2 ML
     Route: 065
     Dates: start: 20210520, end: 20210520

REACTIONS (12)
  - Dyspnoea [Recovered/Resolved]
  - Chest discomfort [Recovered/Resolved]
  - Dizziness [Recovering/Resolving]
  - Off label use [Recovered/Resolved]
  - Flushing [Recovered/Resolved]
  - Wheezing [Recovered/Resolved]
  - Cough [Recovering/Resolving]
  - Pain [Recovering/Resolving]
  - Blindness [Recovering/Resolving]
  - Bronchospasm [Recovered/Resolved]
  - Tremor [Recovering/Resolving]
  - Throat tightness [Recovered/Resolved]

NARRATIVE: CASE EVENT DATE: 20210520
